FAERS Safety Report 5141782-3 (Version None)
Quarter: 2006Q4

REPORT INFORMATION
  Report Type: 
  Country: None (occurrence: None)
  Receive Date: 20061027
  Receipt Date: 20061016
  Transmission Date: 20070319
  Serious: Yes (Hospitalization)
  Sender: FDA-Public Use
  Company Number: 2006126992

PATIENT
  Age: 2 Month
  Sex: Female

DRUGS (4)
  1. SILDENAFIL (PAH) (SILDENAFIL) [Suspect]
     Indication: CONGENITAL CARDIOVASCULAR ANOMALY
     Dosage: 2.5 MG (2.5 MG, 1 IN 1 D), ORAL
     Route: 048
     Dates: start: 20060901
  2. PHENOBARBITAL TAB [Concomitant]
  3. PHENYTOIN SODIUM [Concomitant]
  4. FUROSEMIDE [Concomitant]

REACTIONS (3)
  - ECONOMIC PROBLEM [None]
  - INFLUENZA [None]
  - INTENTIONAL DRUG MISUSE [None]
